FAERS Safety Report 11426107 (Version 1)
Quarter: 2015Q3

REPORT INFORMATION
  Report Type: Spontaneous
  Country: US (occurrence: US)
  Receive Date: 20150821
  Receipt Date: 20150821
  Transmission Date: 20151125
  Serious: No
  Sender: FDA-Public Use
  Company Number: US-ELI_LILLY_AND_COMPANY-US201303002391

PATIENT
  Age: 48 Year
  Sex: Male

DRUGS (4)
  1. HUMULIN R [Suspect]
     Active Substance: INSULIN HUMAN
     Indication: TYPE 2 DIABETES MELLITUS
     Dosage: 43 U, OTHER
  2. HUMULIN R [Suspect]
     Active Substance: INSULIN HUMAN
     Dosage: 42 U, TID
  3. HUMULIN R [Suspect]
     Active Substance: INSULIN HUMAN
     Dosage: 43 U, OTHER
  4. METFORMIN [Concomitant]
     Active Substance: METFORMIN HYDROCHLORIDE
     Indication: TYPE 2 DIABETES MELLITUS
     Dosage: UNK

REACTIONS (4)
  - Localised infection [Unknown]
  - Drug ineffective [Unknown]
  - Blood glucose decreased [Unknown]
  - Blood glucose increased [Unknown]

NARRATIVE: CASE EVENT DATE: 201303
